FAERS Safety Report 14124203 (Version 1)
Quarter: 2017Q4

REPORT INFORMATION
  Report Type: Report from Study
  Country: BR (occurrence: BR)
  Receive Date: 20171025
  Receipt Date: 20171025
  Transmission Date: 20180321
  Serious: Yes (Other)
  Sender: FDA-Public Use
  Company Number: BR-ROCHE-1299170

PATIENT
  Age: 54 Year
  Sex: Female
  Weight: 53 kg

DRUGS (18)
  1. ALENIA (BRAZIL) [Concomitant]
     Active Substance: BUDESONIDE\FORMOTEROL FUMARATE
     Indication: FIBROSIS
     Route: 065
  2. RANITIDINE. [Concomitant]
     Active Substance: RANITIDINE
  3. COLECALCIFEROL [Concomitant]
     Active Substance: CHOLECALCIFEROL
  4. PREDNISONE. [Concomitant]
     Active Substance: PREDNISONE
     Indication: RHEUMATOID ARTHRITIS
  5. FAMOTIDINE. [Concomitant]
     Active Substance: FAMOTIDINE
     Indication: RHEUMATOID ARTHRITIS
  6. MABTHERA [Suspect]
     Active Substance: RITUXIMAB
     Dosage: D15
     Route: 042
     Dates: start: 20140121
  7. RISEDRONATE SODIUM. [Concomitant]
     Active Substance: RISEDRONATE SODIUM
  8. TRIMEB [Concomitant]
     Route: 065
  9. TRIMEBUTINE [Concomitant]
     Active Substance: TRIMEBUTINE
     Indication: COLITIS
     Route: 065
  10. MABTHERA [Suspect]
     Active Substance: RITUXIMAB
     Dosage: D1
     Route: 042
     Dates: start: 20140106
  11. MABTHERA [Suspect]
     Active Substance: RITUXIMAB
     Dosage: ONLY D1
     Route: 042
     Dates: start: 201407
  12. KETOPROFEN. [Concomitant]
     Active Substance: KETOPROFEN
     Indication: RHEUMATOID ARTHRITIS
  13. MESALAZINE [Concomitant]
     Active Substance: MESALAMINE
  14. MABTHERA [Suspect]
     Active Substance: RITUXIMAB
     Indication: RHEUMATOID ARTHRITIS
     Dosage: MOST RECENT INFUSION ON 07/JUL/2014
     Route: 042
     Dates: start: 20131008, end: 201407
  15. SIMVASTATIN. [Concomitant]
     Active Substance: SIMVASTATIN
  16. ACTEMRA [Suspect]
     Active Substance: TOCILIZUMAB
     Indication: RHEUMATOID ARTHRITIS
     Dosage: MOST RECENT DOSE 01/SEP/2017
     Route: 042
     Dates: start: 20140922
  17. MESALAZINE [Concomitant]
     Active Substance: MESALAMINE
     Indication: COLITIS
     Route: 065
  18. NOVALGINA [Concomitant]
     Active Substance: METAMIZOLE SODIUM

REACTIONS (15)
  - Sensory disturbance [Recovered/Resolved]
  - Cough [Unknown]
  - Peripheral swelling [Not Recovered/Not Resolved]
  - Colitis [Not Recovered/Not Resolved]
  - Influenza [Not Recovered/Not Resolved]
  - Hernia [Recovered/Resolved]
  - Pulmonary fibrosis [Unknown]
  - Bronchitis [Unknown]
  - Tongue pruritus [Recovered/Resolved]
  - Fibrosis [Unknown]
  - Influenza [Unknown]
  - Influenza [Recovered/Resolved]
  - Infusion related reaction [Recovered/Resolved]
  - Erythema [Recovered/Resolved]
  - Immunodeficiency [Unknown]

NARRATIVE: CASE EVENT DATE: 20131010
